FAERS Safety Report 6894251-4 (Version None)
Quarter: 2010Q3

REPORT INFORMATION
  Report Type: 
  Country: None (occurrence: None)
  Receive Date: 20100728
  Receipt Date: 20100702
  Transmission Date: 20110219
  Serious: No
  Sender: FDA-Public Use
  Company Number: TCI2010A02582

PATIENT
  Sex: 0

DRUGS (2)
  1. CALSLOT (MANIDIPINE HYDROCHLORIDE) [Suspect]
     Dosage: PER ORAL
     Route: 048
  2. LANSOPRAZOLE [Suspect]

REACTIONS (1)
  - VISION BLURRED [None]
